FAERS Safety Report 7950318 (Version 3)
Quarter: 2012Q4

REPORT INFORMATION
  Report Type: 
  Country: US (occurrence: US)
  Receive Date: 20110518
  Receipt Date: 20120925
  Transmission Date: 20130627
  Serious: Yes (Hospitalization, Other)
  Sender: FDA-Public Use
  Company Number: US-PFIZER INC-2011103684

PATIENT
  Age: 53 Year
  Sex: Female
  Weight: 89.8 kg

DRUGS (16)
  1. LYRICA [Suspect]
     Indication: CONVULSION
     Dosage: UNK
     Route: 048
     Dates: start: 1999
  2. LYRICA [Suspect]
     Dosage: 150 mg in morning; 225 mg in evening
     Route: 048
  3. LYRICA [Suspect]
     Dosage: 75 mg, 2x/day
     Route: 048
  4. DILANTIN [Suspect]
     Indication: CONVULSION
     Dosage: 100 mg, 5x/daily
     Route: 048
     Dates: start: 1999
  5. DILANTIN [Suspect]
     Dosage: 200 mg in morning and 300 mg in evening
     Route: 048
  6. DILANTIN [Suspect]
     Dosage: 200 mg in morning and 200 mg in evening
     Route: 048
  7. DILANTIN [Suspect]
     Dosage: UNK
     Route: 048
  8. LAMICTAL [Suspect]
     Indication: CONVULSION
     Dosage: 100 mg, UNK
     Route: 048
  9. LAMICTAL [Suspect]
     Dosage: 200 mg, 2x/day
     Route: 048
  10. LAMICTAL [Suspect]
     Dosage: one tablet in morning and one and half tablet in evening, 2x/day
     Route: 048
  11. LAMICTAL [Suspect]
     Dosage: UNK
     Route: 048
  12. PHENOBARBITAL [Suspect]
     Indication: CONVULSION
     Dosage: UNK
  13. LEVOTHYROXINE [Concomitant]
     Dosage: 100 ug, daily
  14. LISINOPRIL [Concomitant]
     Dosage: UNK, daily
  15. PRAVASTATIN [Concomitant]
     Dosage: 200 mg, daily
  16. AMLODIPINE [Concomitant]
     Dosage: UNK, daily

REACTIONS (7)
  - Cardiac arrest [Unknown]
  - Myocardial infarction [Unknown]
  - Lower limb fracture [Unknown]
  - Hemiparesis [Unknown]
  - Balance disorder [Unknown]
  - Joint swelling [Not Recovered/Not Resolved]
  - Fall [Unknown]
